FAERS Safety Report 4284624-0 (Version None)
Quarter: 2004Q1

REPORT INFORMATION
  Report Type: 
  Country: None (occurrence: None)
  Receive Date: 20040130
  Receipt Date: 20040130
  Transmission Date: 20041129
  Serious: Yes (Hospitalization)
  Sender: FDA-Public Use
  Company Number: None

PATIENT
  Age: 60 Year
  Sex: Male
  Weight: 113.3993 kg

DRUGS (8)
  1. VELCADE [Suspect]
     Indication: MULTIPLE MYELOMA
     Dosage: 2.9 MG IV
     Route: 042
     Dates: start: 20040116, end: 20040116
  2. VELCADE [Suspect]
     Indication: MULTIPLE MYELOMA
     Dosage: 2.9 MG IV
     Route: 042
     Dates: start: 20040119, end: 20040119
  3. FUROSEMIDE [Concomitant]
  4. NIASPAN [Concomitant]
  5. DIPHENHYDRAMINE HCL [Concomitant]
  6. PERCOCET-5 [Concomitant]
  7. WARFARIN SODIUM [Concomitant]
  8. SODIUM BICARBONATE IN PLASTIC CONTAINER [Concomitant]

REACTIONS (5)
  - ASTHENIA [None]
  - BLOOD CREATININE INCREASED [None]
  - CRYSTAL URINE PRESENT [None]
  - RENAL FAILURE ACUTE [None]
  - URATE NEPHROPATHY [None]
